FAERS Safety Report 4441441-6 (Version None)
Quarter: 2004Q3

REPORT INFORMATION
  Report Type: 
  Country: None (occurrence: None)
  Receive Date: 20040728
  Receipt Date: 20040402
  Transmission Date: 20050211
  Serious: No
  Sender: FDA-Public Use
  Company Number: USA040464003

PATIENT
  Age: 61 Year
  Sex: Male
  Weight: 95 kg

DRUGS (12)
  1. STRATTERA [Suspect]
     Indication: ATTENTION DEFICIT/HYPERACTIVITY DISORDER
     Dosage: 18 MG DAY
     Dates: start: 20040402
  2. LIPITOR [Concomitant]
  3. ALTACE [Concomitant]
  4. GLIPIZIDE [Concomitant]
  5. PROTONIX [Concomitant]
  6. ASPIRIN [Concomitant]
  7. CALCIUM AND VITAMIN D [Concomitant]
  8. MULTI-VITAMIN [Concomitant]
  9. VITAMIN E [Concomitant]
  10. GARLIC [Concomitant]
  11. FLAXSEED OIL [Concomitant]
  12. ANDROGEL [Concomitant]

REACTIONS (4)
  - DIZZINESS [None]
  - FEELING ABNORMAL [None]
  - MEMORY IMPAIRMENT [None]
  - VISION BLURRED [None]
